FAERS Safety Report 6174238-X (Version None)
Quarter: 2009Q2

REPORT INFORMATION
  Report Type: 
  Country: None (occurrence: None)
  Receive Date: 20090430
  Receipt Date: 20080318
  Transmission Date: 20091009
  Serious: No
  Sender: FDA-Public Use
  Company Number: US-ASTRAZENECA-2008UW05466

PATIENT
  Age: 70 Year
  Sex: Female
  Weight: 90.7 kg

DRUGS (5)
  1. NEXIUM [Suspect]
     Indication: GASTROOESOPHAGEAL REFLUX DISEASE
     Route: 048
     Dates: start: 20080309, end: 20080309
  2. FUROSEMIDE [Concomitant]
  3. PRAVASTATIN [Concomitant]
  4. DILTIAZEM [Concomitant]
  5. REFRESH EYE DROPS [Concomitant]

REACTIONS (4)
  - CONTUSION [None]
  - FLATULENCE [None]
  - HYPERSENSITIVITY [None]
  - PRURITUS [None]
